FAERS Safety Report 21097911 (Version 1)
Quarter: 2022Q3

REPORT INFORMATION
  Report Type: Spontaneous
  Country: DE (occurrence: DE)
  Receive Date: 20220719
  Receipt Date: 20220719
  Transmission Date: 20221026
  Serious: Yes (Hospitalization)
  Sender: FDA-Public Use
  Company Number: None

PATIENT
  Age: 57 Year
  Sex: Female
  Weight: 71 kg

DRUGS (1)
  1. XGEVA [Suspect]
     Active Substance: DENOSUMAB
     Indication: Neoplasm malignant
     Dosage: 120 MILLIGRAM, Q4WK
     Route: 058
     Dates: start: 20120901, end: 20211015

REACTIONS (2)
  - Necrosis [Recovered/Resolved with Sequelae]
  - Cholesteatoma [Recovered/Resolved with Sequelae]

NARRATIVE: CASE EVENT DATE: 20140101
